FAERS Safety Report 8876298 (Version 2)
Quarter: 2012Q4

REPORT INFORMATION
  Report Type: 
  Country: PL (occurrence: PL)
  Receive Date: 20121031
  Receipt Date: 20121105
  Transmission Date: 20130627
  Serious: Yes (Death)
  Sender: FDA-Public Use
  Company Number: PL-JNJFOC-20121010042

PATIENT
  Age: 63 Year
  Sex: Female
  Weight: 68 kg

DRUGS (10)
  1. RISPOLEPT [Suspect]
     Indication: SCHIZOPHRENIA
     Route: 048
  2. KLOZAPOL [Suspect]
     Indication: PRODUCT USED FOR UNKNOWN INDICATION
     Route: 065
  3. FLUPENTIXOL [Suspect]
     Indication: PRODUCT USED FOR UNKNOWN INDICATION
     Route: 065
  4. MIRZATEN [Suspect]
     Indication: PRODUCT USED FOR UNKNOWN INDICATION
     Route: 065
  5. PAROXETINE [Suspect]
     Indication: PRODUCT USED FOR UNKNOWN INDICATION
     Route: 065
  6. DEPAKINE [Suspect]
     Indication: PRODUCT USED FOR UNKNOWN INDICATION
     Route: 065
  7. AN UNKNOWN MEDICATION [Suspect]
     Indication: PRODUCT USED FOR UNKNOWN INDICATION
     Route: 065
  8. KETONAL [Suspect]
     Indication: PRODUCT USED FOR UNKNOWN INDICATION
     Route: 065
  9. AUGMENTIN [Suspect]
     Indication: PRODUCT USED FOR UNKNOWN INDICATION
     Route: 065
  10. IMMUNOSUPPRESSANTS [Suspect]
     Indication: IMMUNOSUPPRESSION
     Route: 065

REACTIONS (2)
  - Pneumonia bacterial [Fatal]
  - Toxic epidermal necrolysis [Fatal]
